FAERS Safety Report 5460870-5 (Version None)
Quarter: 2007Q3

REPORT INFORMATION
  Report Type: 
  Country: None (occurrence: None)
  Receive Date: 20070918
  Receipt Date: 20070820
  Transmission Date: 20080115
  Serious: Yes (Life-Threatening, Hospitalization)
  Sender: FDA-Public Use
  Company Number: 6037548

PATIENT
  Age: 80 Year
  Sex: Male

DRUGS (8)
  1. WARFARIN SODIUM [Suspect]
     Indication: ATRIAL FIBRILLATION
     Dosage: (5 MG) ORAL
     Route: 048
     Dates: end: 20070729
  2. CARBOCISTEINE (CARBOCISTEINE) [Concomitant]
  3. DIGOXIN [Concomitant]
  4. DOCUSATE (DOCUSATE) [Concomitant]
  5. FERROUS SULPHATE (FERROUS SULFATE) [Concomitant]
  6. QUININE SULFATE [Concomitant]
  7. SALBUTAMOL (SALBUTAMOL) [Concomitant]
  8. TAMSULOSIN HCL [Concomitant]

REACTIONS (2)
  - HEAD INJURY [None]
  - SUBDURAL HAEMATOMA [None]
